FAERS Safety Report 9185713 (Version 5)
Quarter: 2013Q4

REPORT INFORMATION
  Report Type: Spontaneous
  Country: ES (occurrence: None)
  Receive Date: 20130321
  Receipt Date: 20131230
  Transmission Date: 20140711
  Serious: Yes (Hospitalization)
  Sender: FDA-Public Use
  Company Number: 2013ES001277

PATIENT
  Age: 83 Year
  Sex: Male
  Weight: 70 kg

DRUGS (3)
  1. PONATINIB (AP24534) TABLET [Suspect]
     Indication: CHRONIC MYELOID LEUKAEMIA
     Route: 048
     Dates: start: 20110624, end: 20130207
  2. FUROSEMIDE (FUROSEMIDE) [Concomitant]
  3. GABAPENTIN (GABAPENTIN) [Concomitant]

REACTIONS (3)
  - Peripheral arterial occlusive disease [None]
  - Toxicity to various agents [None]
  - Refusal of treatment by patient [None]
